FAERS Safety Report 5486157-2 (Version None)
Quarter: 2007Q4

REPORT INFORMATION
  Report Type: 
  Country: None (occurrence: None)
  Receive Date: 20071015
  Receipt Date: 20071003
  Transmission Date: 20080405
  Serious: Yes (Other)
  Sender: FDA-Public Use
  Company Number: BR-PFIZER INC-2007065991

PATIENT
  Sex: Female
  Weight: 62 kg

DRUGS (5)
  1. CHAMPIX [Suspect]
     Indication: TOBACCO USER
     Route: 048
     Dates: start: 20070801, end: 20070927
  2. NATRILIX - SLOW RELEASE [Concomitant]
     Indication: HYPERTENSION
     Route: 048
  3. RIVOTRIL [Concomitant]
     Route: 048
  4. SULPIRIDE [Concomitant]
     Route: 048
  5. BROMAZEPAM [Concomitant]
     Route: 048

REACTIONS (10)
  - ABDOMINAL DISTENSION [None]
  - ABNORMAL DREAMS [None]
  - ANXIETY [None]
  - BLOOD UREA INCREASED [None]
  - EYELID OPERATION [None]
  - INCREASED APPETITE [None]
  - MALAISE [None]
  - NAUSEA [None]
  - SKIN LESION [None]
  - WEIGHT INCREASED [None]
